FAERS Safety Report 25914531 (Version 1)
Quarter: 2025Q4

REPORT INFORMATION
  Report Type: Spontaneous
  Country: US (occurrence: US)
  Receive Date: 20251013
  Receipt Date: 20251013
  Transmission Date: 20260117
  Serious: Yes (Hospitalization, Other)
  Sender: SANOFI AVENTIS
  Company Number: US-DialogSolutions-SAAVPROD-PI828360-C1

PATIENT
  Age: 52 Year
  Sex: Male

DRUGS (4)
  1. ALEMTUZUMAB [Suspect]
     Active Substance: ALEMTUZUMAB
     Indication: Renal transplant
     Dosage: UNK
     Route: 041
  2. TACROLIMUS [Suspect]
     Active Substance: TACROLIMUS
     Indication: Renal transplant
     Dosage: UNK
  3. TACROLIMUS [Suspect]
     Active Substance: TACROLIMUS
     Dosage: TARGET LEVEL WAS ADJUSTED TO 6-8 NG/ML
  4. MYCOPHENOLATE MOFETIL [Suspect]
     Active Substance: MYCOPHENOLATE MOFETIL
     Indication: Renal transplant
     Dosage: UNK

REACTIONS (18)
  - Ischaemic cerebral infarction [Unknown]
  - Carotid artery thrombosis [Unknown]
  - Tuberculosis [Unknown]
  - Off label use [Unknown]
  - Inflammation [Unknown]
  - Sinusitis [Unknown]
  - Pyrexia [Unknown]
  - Petrositis [Unknown]
  - Mastoiditis [Unknown]
  - General physical health deterioration [Unknown]
  - Pseudomonas infection [Unknown]
  - Mental status changes [Unknown]
  - Skin laceration [Unknown]
  - Muscular weakness [Unknown]
  - Sensory loss [Unknown]
  - Bacteraemia [Unknown]
  - Hemianopia [Unknown]
  - Acute respiratory failure [Unknown]
